FAERS Safety Report 8771095 (Version 1)
Quarter: 2012Q4

REPORT INFORMATION
  Report Type: 
  Country: US (occurrence: US)
  Receive Date: 20120906
  Receipt Date: 20120906
  Transmission Date: 20130627
  Serious: Yes (Hospitalization)
  Sender: FDA-Public Use
  Company Number: US-PFIZER INC-2012215474

PATIENT
  Age: 43 Year
  Sex: Female

DRUGS (1)
  1. ADVIL [Suspect]
     Indication: MYALGIA
     Dosage: UNK, ONCE
     Dates: start: 20120901

REACTIONS (1)
  - Hypersensitivity [Unknown]
